FAERS Safety Report 6518207-6 (Version None)
Quarter: 2009Q4

REPORT INFORMATION
  Report Type: 
  Country: None (occurrence: None)
  Receive Date: 20091218
  Receipt Date: 20091130
  Transmission Date: 20100525
  Serious: Yes (Death)
  Sender: FDA-Public Use
  Company Number: JPI-P-009294

PATIENT
  Age: 48 Year
  Sex: Male

DRUGS (17)
  1. XYREM [Suspect]
     Indication: RAPID EYE MOVEMENTS SLEEP ABNORMAL
     Dosage: 4.5 GM (2.25 GM,2 IN 1 D),ORAL ; 6 GM (3 GM,2 IN 1 D),ORAL
     Route: 048
     Dates: start: 20091105, end: 20091122
  2. XYREM [Suspect]
     Indication: RAPID EYE MOVEMENTS SLEEP ABNORMAL
     Dosage: 4.5 GM (2.25 GM,2 IN 1 D),ORAL ; 6 GM (3 GM,2 IN 1 D),ORAL
     Route: 048
     Dates: start: 20091123
  3. ACETAMINOPEN, BUTALBITAL, CAFFEINE [Concomitant]
  4. VITAMINS [Concomitant]
  5. GABAPENTIN [Concomitant]
  6. GEMFIBROZIL [Concomitant]
  7. LITHIUM CARBONATE [Concomitant]
  8. POTASSIUM CHLORIDE [Concomitant]
  9. METFORMIN HYDROCHLORIDE [Concomitant]
  10. OLANZAPINE [Concomitant]
  11. LEVOTHYROXINE SODIUM [Concomitant]
  12. DULOXETINE HYDROCHLORIDE [Concomitant]
  13. PIOGLITAZONE HYDROCHLORIDE [Concomitant]
  14. VERAPAMIL [Concomitant]
  15. LISINOPRIL [Concomitant]
  16. GLYBURIDE [Concomitant]
  17. ATORVASTATIN CALCIUM [Concomitant]

REACTIONS (2)
  - ENURESIS [None]
  - SOMNAMBULISM [None]
